FAERS Safety Report 8319923-6 (Version None)
Quarter: 2012Q2

REPORT INFORMATION
  Report Type: 
  Country: None (occurrence: None)
  Receive Date: 20120427
  Receipt Date: 20120417
  Transmission Date: 20120825
  Serious: Yes (Hospitalization)
  Sender: FDA-Public Use
  Company Number: CA-FRI-1000030099

PATIENT
  Sex: Female

DRUGS (3)
  1. ESCITALOPRAM [Suspect]
     Dosage: 20 MG
     Route: 048
     Dates: start: 20120416
  2. ESCITALOPRAM [Suspect]
     Dosage: 10 MG
     Route: 048
     Dates: start: 20120328, end: 20120415
  3. NAPROXEN [Concomitant]
     Indication: PAIN
     Dosage: DAILY DOSE NOT REPORTED

REACTIONS (2)
  - DEPRESSION [None]
  - HEART RATE IRREGULAR [None]
